FAERS Safety Report 9541829 (Version 1)
Quarter: 2013Q3

REPORT INFORMATION
  Report Type: Report from Study
  Country: BR (occurrence: BR)
  Receive Date: 20130923
  Receipt Date: 20130923
  Transmission Date: 20140515
  Serious: Yes (Hospitalization, Other)
  Sender: FDA-Public Use
  Company Number: PHHY2013BR105195

PATIENT
  Age: 78 Year
  Sex: Female
  Weight: 56 kg

DRUGS (5)
  1. EXELON PATCH [Suspect]
     Indication: DEMENTIA ALZHEIMER^S TYPE
     Dosage: 9.5 MG, DAILY
     Route: 062
  2. VICOG [Concomitant]
     Dosage: UNK UKN, UNK
  3. SIFROL [Concomitant]
     Dosage: 0.25 MG, UNK
  4. ATENOLOL [Concomitant]
     Indication: BLOOD PRESSURE
     Dosage: UNK UKN, UNK
  5. HYDROCHLOROTHIAZIDE [Concomitant]
     Dosage: UNK UKN, UNK

REACTIONS (2)
  - Upper limb fracture [Unknown]
  - Fall [Unknown]
